FAERS Safety Report 25685387 (Version 1)
Quarter: 2025Q3

REPORT INFORMATION
  Report Type: Spontaneous
  Country: US (occurrence: None)
  Receive Date: 20250814
  Receipt Date: 20250814
  Transmission Date: 20251020
  Serious: Yes (Other)
  Sender: FDA-CTU
  Company Number: None

PATIENT
  Age: 59 Year
  Sex: Female
  Weight: 94.5 kg

DRUGS (4)
  1. SKYRIZI [Suspect]
     Active Substance: RISANKIZUMAB-RZAA
     Indication: Crohn^s disease
     Route: 058
     Dates: start: 20250219
  2. CITALOPRAM [Concomitant]
     Active Substance: CITALOPRAM
  3. METOPROLOL [Concomitant]
     Active Substance: METOPROLOL
  4. CYCLOBENZAPRINE [Concomitant]
     Active Substance: CYCLOBENZAPRINE

REACTIONS (3)
  - Vertigo [None]
  - Tremor [None]
  - Amnesia [None]

NARRATIVE: CASE EVENT DATE: 20250814
